FAERS Safety Report 19054383 (Version 2)
Quarter: 2021Q2

REPORT INFORMATION
  Report Type: Spontaneous
  Country: US (occurrence: US)
  Receive Date: 20210324
  Receipt Date: 20210525
  Transmission Date: 20210717
  Serious: No
  Sender: FDA-Public Use
  Company Number: US-TEVA-2021-US-1884742

PATIENT
  Age: 39 Year
  Sex: Female

DRUGS (6)
  1. AJOVY [Suspect]
     Active Substance: FREMANEZUMAB-VFRM
     Indication: MIGRAINE
     Route: 065
  2. EPIPEN [Concomitant]
     Active Substance: EPINEPHRINE
  3. AJOVY [Suspect]
     Active Substance: FREMANEZUMAB-VFRM
     Indication: POST-TRAUMATIC HEADACHE
  4. AJOVY [Suspect]
     Active Substance: FREMANEZUMAB-VFRM
     Indication: MIGRAINE
     Route: 065
  5. AJOVY [Suspect]
     Active Substance: FREMANEZUMAB-VFRM
     Indication: POST CONCUSSION SYNDROME
  6. AJOVY [Suspect]
     Active Substance: FREMANEZUMAB-VFRM
     Indication: VESTIBULAR DISORDER

REACTIONS (4)
  - Injection site pruritus [Unknown]
  - Product use in unapproved indication [Unknown]
  - Injection site pain [Unknown]
  - Injection site induration [Unknown]
